FAERS Safety Report 15452075 (Version 1)
Quarter: 2018Q4

REPORT INFORMATION
  Report Type: Spontaneous
  Country: NO (occurrence: NO)
  Receive Date: 20181001
  Receipt Date: 20181001
  Transmission Date: 20190204
  Serious: Yes (Other)
  Sender: FDA-Public Use
  Company Number: NO-PFIZER INC-2018389801

PATIENT
  Age: 57 Year
  Sex: Female
  Weight: 113 kg

DRUGS (2)
  1. LOSARTAN/HYDROCHLOROTHIAZIDE KRKA [Concomitant]
     Dates: start: 20100101
  2. ZELDOX [Suspect]
     Active Substance: ZIPRASIDONE
     Indication: ANXIETY
     Dosage: 20 MG, 2X/DAY
     Dates: start: 20100101

REACTIONS (3)
  - Weight increased [Not Recovered/Not Resolved]
  - Hyperhidrosis [Not Recovered/Not Resolved]
  - Visual impairment [Not Recovered/Not Resolved]

NARRATIVE: CASE EVENT DATE: 20130101
